FAERS Safety Report 6293404-6 (Version None)
Quarter: 2009Q3

REPORT INFORMATION
  Report Type: 
  Country: None (occurrence: None)
  Receive Date: 20090731
  Receipt Date: 20090720
  Transmission Date: 20100115
  Serious: Yes (Hospitalization, Other)
  Sender: FDA-Public Use
  Company Number: US-ELI_LILLY_AND_COMPANY-US200907004520

PATIENT
  Age: 76 Year
  Sex: Female

DRUGS (2)
  1. ZYPREXA [Suspect]
     Dosage: 7.5 MG, UNK
     Dates: start: 20090706
  2. EFFEXOR [Concomitant]
     Indication: DEPRESSION
     Dosage: 225 MG, UNK
     Dates: start: 20090706

REACTIONS (1)
  - PULMONARY EMBOLISM [None]
